FAERS Safety Report 10185473 (Version 2)
Quarter: 2014Q2

REPORT INFORMATION
  Report Type: Spontaneous
  Country: US (occurrence: AU)
  Receive Date: 20140521
  Receipt Date: 20140521
  Transmission Date: 20141212
  Serious: Yes (Hospitalization)
  Sender: FDA-Public Use
  Company Number: AU-FRI-1000054544

PATIENT
  Age: 26 Year
  Sex: Female
  Weight: 50 kg

DRUGS (3)
  1. SAPHRIS [Suspect]
     Dosage: 10 MG
     Route: 060
  2. SAPHRIS [Suspect]
     Dosage: SEVERAL TABLETS
     Dates: start: 20140217, end: 20140217
  3. EFEXOR [Concomitant]
     Dosage: 150 MG

REACTIONS (2)
  - Dystonia [Recovered/Resolved]
  - Incorrect route of drug administration [Recovered/Resolved]
